FAERS Safety Report 6596128-0 (Version None)
Quarter: 2010Q1

REPORT INFORMATION
  Report Type: 
  Country: None (occurrence: None)
  Receive Date: 20100223
  Receipt Date: 20100211
  Transmission Date: 20100710
  Serious: Yes (Hospitalization, Other)
  Sender: FDA-Public Use
  Company Number: US-PFIZER INC-2010020094

PATIENT
  Sex: Female
  Weight: 99.773 kg

DRUGS (2)
  1. CHANTIX [Suspect]
     Indication: SMOKING CESSATION THERAPY
     Dates: end: 20100101
  2. WELLBUTRIN [Interacting]
     Indication: ANXIETY
     Dosage: UNK
     Dates: start: 20100101

REACTIONS (6)
  - ANXIETY [None]
  - DEPRESSION [None]
  - DRUG INTERACTION [None]
  - HALLUCINATION [None]
  - HALLUCINATION, AUDITORY [None]
  - SUICIDAL IDEATION [None]
